FAERS Safety Report 7548810-6 (Version None)
Quarter: 2011Q2

REPORT INFORMATION
  Report Type: 
  Country: None (occurrence: None)
  Receive Date: 20110615
  Receipt Date: 20110613
  Transmission Date: 20111010
  Serious: Yes (Death)
  Sender: FDA-Public Use
  Company Number: JP-SANOFI-AVENTIS-2011SA022551

PATIENT
  Age: 64 Year
  Sex: Male
  Weight: 52 kg

DRUGS (4)
  1. SENNOSIDE A [Concomitant]
     Route: 048
  2. FAMOTIDINE [Concomitant]
     Route: 048
  3. TAXOTERE [Suspect]
     Indication: OESOPHAGEAL CARCINOMA
     Route: 041
     Dates: start: 20110225, end: 20110325
  4. LOXONIN [Concomitant]
     Route: 048
     Dates: start: 20110325, end: 20110413

REACTIONS (2)
  - INTERSTITIAL LUNG DISEASE [None]
  - RESPIRATORY FAILURE [None]
